FAERS Safety Report 13003865 (Version 1)
Quarter: 2016Q4

REPORT INFORMATION
  Report Type: Report from Study
  Country: None (occurrence: BR)
  Receive Date: 20161206
  Receipt Date: 20161206
  Transmission Date: 20170207
  Serious: Yes (Other)
  Sender: FDA-Public Use
  Company Number: BR-ABBVIE-16P-020-1802448-00

PATIENT
  Sex: Female

DRUGS (4)
  1. HIDANTAL [Concomitant]
     Active Substance: PHENYTOIN SODIUM
     Indication: BRAIN OPERATION
     Route: 065
     Dates: start: 2002
  2. SYNTHROID [Suspect]
     Active Substance: LEVOTHYROXINE SODIUM
     Indication: HYPOTHYROIDISM
     Dosage: DAILY DOSE: 125 MCG; IN THE MORNING/ FASTING
     Route: 048
     Dates: start: 2006
  3. SILYBUM MARIANUM [Concomitant]
     Active Substance: MILK THISTLE
     Indication: LIVER DISORDER
     Route: 065
     Dates: start: 2014
  4. GARDENAL [Concomitant]
     Active Substance: PHENOBARBITAL
     Indication: BRAIN OPERATION
     Route: 065
     Dates: start: 2002

REACTIONS (2)
  - Abdominal hernia [Unknown]
  - Appendicitis [Unknown]

NARRATIVE: CASE EVENT DATE: 2015
